FAERS Safety Report 25092278 (Version 3)
Quarter: 2025Q3

REPORT INFORMATION
  Report Type: Spontaneous
  Country: EU (occurrence: EU)
  Receive Date: 20250319
  Receipt Date: 20250803
  Transmission Date: 20251021
  Serious: Yes (Hospitalization)
  Sender: ALEXION PHARMACEUTICALS
  Company Number: EU-AFSSAPS-AVCN2025000144

PATIENT
  Age: 8 Day
  Sex: Male
  Weight: 2.56 kg

DRUGS (16)
  1. SYMBICORT [Suspect]
     Active Substance: BUDESONIDE\FORMOTEROL FUMARATE DIHYDRATE
     Dosage: 2 DOSAGE FORM, QD
     Dates: end: 20231106
  2. ESOMEPRAZOLE [Suspect]
     Active Substance: ESOMEPRAZOLE
     Dosage: 20 MILLIGRAM, 1/DAY
     Dates: end: 20231106
  3. SUBUTEX [Suspect]
     Active Substance: BUPRENORPHINE HYDROCHLORIDE
     Indication: Product used for unknown indication
  4. SUBUTEX [Suspect]
     Active Substance: BUPRENORPHINE HYDROCHLORIDE
  5. SUBUTEX [Suspect]
     Active Substance: BUPRENORPHINE HYDROCHLORIDE
     Dosage: 24 MILLIGRAM, 1/DAY
     Dates: end: 20231106
  6. ALPRAZOLAM [Suspect]
     Active Substance: ALPRAZOLAM
     Indication: Product used for unknown indication
  7. ALPRAZOLAM [Suspect]
     Active Substance: ALPRAZOLAM
  8. ALPRAZOLAM [Suspect]
     Active Substance: ALPRAZOLAM
     Dosage: 10 MILLIGRAM, 1/DAY
     Dates: end: 20231106
  9. ZOLPIDEM [Suspect]
     Active Substance: ZOLPIDEM TARTRATE
     Indication: Product used for unknown indication
     Dosage: 10 MG/DAY
     Dates: end: 20231106
  10. ZOLPIDEM [Suspect]
     Active Substance: ZOLPIDEM TARTRATE
  11. ZOLPIDEM [Suspect]
     Active Substance: ZOLPIDEM TARTRATE
     Dosage: 10 MILLIGRAM, 1/DAY
     Dates: end: 20231106
  12. MIRTAZAPINE [Suspect]
     Active Substance: MIRTAZAPINE
     Indication: Product used for unknown indication
     Dosage: 15 MG/DAY
     Dates: end: 20231106
  13. MIRTAZAPINE [Suspect]
     Active Substance: MIRTAZAPINE
  14. MIRTAZAPINE [Suspect]
     Active Substance: MIRTAZAPINE
     Dosage: 15 MILLIGRAM, 1/DAY
     Dates: end: 20231106
  15. ARNICA MONTANA (HOMEOPATHIC) [Suspect]
     Active Substance: HOMEOPATHICS
  16. TOBACCO LEAF [Suspect]
     Active Substance: TOBACCO LEAF

REACTIONS (3)
  - Jaundice neonatal [Recovered/Resolved]
  - Drug withdrawal syndrome neonatal [Recovered/Resolved]
  - Foetal exposure during pregnancy [Recovered/Resolved]

NARRATIVE: CASE EVENT DATE: 20231109
